FAERS Safety Report 18851458 (Version 8)
Quarter: 2021Q4

REPORT INFORMATION
  Report Type: Report from Study
  Country: CZ (occurrence: CZ)
  Receive Date: 20210205
  Receipt Date: 20211029
  Transmission Date: 20220303
  Serious: Yes (Hospitalization)
  Sender: FDA-Public Use
  Company Number: NVSC2021CZ021607

PATIENT
  Age: 61 Year
  Sex: Male
  Weight: 122 kg

DRUGS (13)
  1. ISCALIMAB [Suspect]
     Active Substance: ISCALIMAB
     Indication: Renal transplant
     Dosage: 22.3 ML, ONCE/SINGLE
     Route: 042
     Dates: start: 20190426, end: 20210114
  2. MYCOPHENOLATE MOFETIL [Suspect]
     Active Substance: MYCOPHENOLATE MOFETIL
     Indication: Renal transplant
     Dosage: 1 G, QD
     Route: 048
     Dates: start: 20190426, end: 20210128
  3. MYCOPHENOLATE MOFETIL [Suspect]
     Active Substance: MYCOPHENOLATE MOFETIL
     Dosage: 250 MG, BID
     Route: 048
     Dates: start: 20210311
  4. ALLOPURINOLUM [Concomitant]
     Indication: Hyperuricaemia
     Dosage: UNK
     Route: 065
     Dates: start: 20191011, end: 20210130
  5. AMLODIPINE BESYLATE [Concomitant]
     Active Substance: AMLODIPINE BESYLATE
     Indication: Hypertension
     Dosage: UNK
     Route: 065
     Dates: start: 20191112, end: 20210217
  6. ATORVASTATIN [Concomitant]
     Active Substance: ATORVASTATIN
     Indication: Hyperlipidaemia
     Dosage: UNK
     Route: 065
     Dates: start: 20190427
  7. INSULINUM GLARGINUM [Concomitant]
     Indication: Diabetes mellitus
     Dosage: UNK
     Route: 065
     Dates: start: 20190801, end: 20210216
  8. INSULINUM GLARGINUM [Concomitant]
     Dosage: UNK
     Route: 065
     Dates: start: 20210219, end: 20210219
  9. INSULINUM GLARGINUM [Concomitant]
     Dosage: UNK
     Route: 065
     Dates: start: 20210222, end: 20210310
  10. INSULINUM GLARGINUM [Concomitant]
     Dosage: UNK
     Route: 065
     Dates: start: 20210218, end: 20210218
  11. CHOLECALCIFEROL [Concomitant]
     Active Substance: CHOLECALCIFEROL
     Indication: Hyperparathyroidism secondary
     Dosage: UNK
     Route: 065
     Dates: start: 20190503, end: 20210130
  12. PREDNISONE [Concomitant]
     Active Substance: PREDNISONE
     Indication: Prophylaxis against transplant rejection
     Dosage: UNK
     Route: 065
     Dates: start: 20190705
  13. PERINDOPRILUM [Concomitant]
     Indication: Hypertension
     Dosage: UNK
     Route: 065
     Dates: start: 20190718, end: 20210218

REACTIONS (1)
  - Urinary tract infection [Recovered/Resolved with Sequelae]

NARRATIVE: CASE EVENT DATE: 20210128
